FAERS Safety Report 25423719 (Version 2)
Quarter: 2025Q2

REPORT INFORMATION
  Report Type: Spontaneous
  Country: IT (occurrence: IT)
  Receive Date: 20250611
  Receipt Date: 20250623
  Transmission Date: 20250716
  Serious: Yes (Other)
  Sender: TEVA
  Company Number: IT-TEVA-VS-3338877

PATIENT
  Age: 52 Year
  Sex: Female

DRUGS (3)
  1. PACLITAXEL [Suspect]
     Active Substance: PACLITAXEL
     Indication: Paget^s disease of the vulva
     Route: 065
  2. TRASTUZUMAB [Suspect]
     Active Substance: TRASTUZUMAB
     Indication: Paget^s disease of the vulva
     Route: 065
  3. PACLITAXEL [Suspect]
     Active Substance: PACLITAXEL
     Indication: Paget^s disease of the vulva
     Route: 065

REACTIONS (6)
  - Leukopenia [Unknown]
  - Pyrexia [Unknown]
  - Eyelid oedema [Unknown]
  - Off label use [Unknown]
  - Anaemia [Unknown]
  - Neutropenia [Unknown]
